FAERS Safety Report 6725387-6 (Version None)
Quarter: 2010Q2

REPORT INFORMATION
  Report Type: 
  Country: None (occurrence: None)
  Receive Date: 20100514
  Receipt Date: 20100430
  Transmission Date: 20101027
  Serious: Yes (Other)
  Sender: FDA-Public Use
  Company Number: ES-ELI_LILLY_AND_COMPANY-ES201005000041

PATIENT
  Sex: Female
  Weight: 64 kg

DRUGS (8)
  1. FORTEO [Suspect]
     Indication: OSTEOPOROSIS
     Dosage: 20 UG, DAILY (1/D)
     Route: 058
     Dates: start: 20091217
  2. CALCIFEROL [Concomitant]
     Indication: OSTEOPOROSIS
     Dosage: 0.266 MG, 1/2 AMP
     Route: 048
     Dates: start: 20100208, end: 20100328
  3. PARACETAMOL [Concomitant]
     Indication: PAIN
     Dosage: 1 G, EVERY 8 HRS
     Route: 048
  4. METAMIZOL [Concomitant]
     Indication: PAIN
     Dosage: UNK, EVERY 8 HRS
     Route: 048
  5. GABAPENTINA [Concomitant]
     Dosage: 300 MG, DAILY (1/D)
     Route: 048
  6. FAMOTIDINA [Concomitant]
     Indication: PROPHYLAXIS AGAINST GASTROINTESTINAL ULCER
     Dosage: 40 D/F, UNKNOWN
     Route: 048
  7. TETRAZEPAM [Concomitant]
     Dosage: 50 MG, DAILY (1/D)
     Route: 048
  8. SIMVASTATINA [Concomitant]
     Indication: HYPERCHOLESTEROLAEMIA
     Dosage: 20 MG, DAILY (1/D)
     Route: 048

REACTIONS (2)
  - KIDNEY INFECTION [None]
  - RENAL COLIC [None]
